FAERS Safety Report 10674859 (Version 5)
Quarter: 2015Q1

REPORT INFORMATION
  Report Type: Spontaneous
  Country: NL (occurrence: NL)
  Receive Date: 20141224
  Receipt Date: 20150313
  Transmission Date: 20150720
  Serious: Yes (Other)
  Sender: FDA-Public Use
  Company Number: NL-PFIZER INC-2014354024

PATIENT
  Age: 71 Year
  Sex: Female
  Weight: 61 kg

DRUGS (9)
  1. OXYCODONE [Concomitant]
     Active Substance: OXYCODONE
     Indication: NEURALGIA
     Dosage: UNK
     Dates: start: 201408, end: 201408
  2. LYRICA [Suspect]
     Active Substance: PREGABALIN
     Dosage: 75 MG, 2X/DAY
     Dates: start: 201407
  3. ACETYLSALICYLIC ACID [Concomitant]
     Active Substance: ASPIRIN
     Indication: CEREBRAL INFARCTION
     Dosage: 80 MG, UNK
  4. CLOMIPRAMINE [Concomitant]
     Active Substance: CLOMIPRAMINE
     Indication: NEURALGIA
  5. LOSARTAN [Concomitant]
     Active Substance: LOSARTAN
     Indication: CEREBRAL INFARCTION
     Dosage: UNK
  6. CLOMIPRAMINE [Concomitant]
     Active Substance: CLOMIPRAMINE
     Indication: DEPRESSION
     Dosage: 10 MG TWICE IN THE DAYTIME AND 10 MG ONCE IN THE EVENING
  7. LYRICA [Suspect]
     Active Substance: PREGABALIN
     Indication: NEURALGIA
     Dosage: 75 MG, 1X/DAY
  8. METOPROLOL [Concomitant]
     Active Substance: METOPROLOL
     Indication: CEREBRAL INFARCTION
     Dosage: 25 MG, UNK
  9. LACTULOSE. [Concomitant]
     Active Substance: LACTULOSE
     Indication: CONSTIPATION
     Dosage: 15 ML, UNK

REACTIONS (10)
  - Asthenia [Recovering/Resolving]
  - Pre-existing condition improved [Unknown]
  - Memory impairment [Recovering/Resolving]
  - Dizziness [Recovering/Resolving]
  - Therapeutic response unexpected [Unknown]
  - Dementia [Recovering/Resolving]
  - Suicidal ideation [Recovering/Resolving]
  - Pain [Recovering/Resolving]
  - Incontinence [Recovering/Resolving]
  - Malaise [Recovering/Resolving]

NARRATIVE: CASE EVENT DATE: 201407
